FAERS Safety Report 5037725-3 (Version None)
Quarter: 2006Q2

REPORT INFORMATION
  Report Type: 
  Country: None (occurrence: None)
  Receive Date: 20060601
  Receipt Date: 20060210
  Transmission Date: 20061013
  Serious: No
  Sender: FDA-Public Use
  Company Number: 2006PV008500

PATIENT
  Age: 58 Year
  Sex: Female
  Weight: 106.5953 kg

DRUGS (3)
  1. BYETTA [Suspect]
     Indication: DIABETES MELLITUS INSULIN-DEPENDENT
     Dosage: 5 MCG;BID;SC
     Route: 058
     Dates: start: 20050701, end: 20050801
  2. GLUCOTROL XL [Concomitant]
  3. HUMALOG MIX 75/25 [Concomitant]

REACTIONS (1)
  - URTICARIA GENERALISED [None]
